FAERS Safety Report 9238237 (Version 1)
Quarter: 2013Q2

REPORT INFORMATION
  Report Type: Spontaneous
  Country: US (occurrence: US)
  Receive Date: 20130418
  Receipt Date: 20130418
  Transmission Date: 20140414
  Serious: Yes (Other)
  Sender: FDA-Public Use
  Company Number: US-BAYER-2013-047238

PATIENT
  Age: 20 Year
  Sex: Female

DRUGS (1)
  1. MIRENA [Suspect]
     Indication: CONTRACEPTION
     Dosage: 20 MCG/24HR, CONT
     Route: 015
     Dates: start: 20130401

REACTIONS (6)
  - Device dislocation [None]
  - Medical device discomfort [None]
  - Discomfort [None]
  - Abdominal distension [None]
  - Abdominal pain [None]
  - Feeling abnormal [Recovered/Resolved]
